FAERS Safety Report 8170887-8 (Version None)
Quarter: 2012Q1

REPORT INFORMATION
  Report Type: 
  Country: None (occurrence: None)
  Receive Date: 20120104
  Receipt Date: 20111114
  Transmission Date: 20120608
  Serious: No
  Sender: FDA-Public Use
  Company Number: 2011HGS-002797

PATIENT
  Age: 61 Year
  Sex: Female
  Weight: 65.7716 kg

DRUGS (5)
  1. BENLYSTA [Suspect]
     Indication: SYSTEMIC LUPUS ERYTHEMATOSUS
     Dosage: 1 IN 28 D, INTRAVENOUS DRIP
     Route: 041
     Dates: start: 20111003
  2. PREDNISONE TAB [Concomitant]
  3. PLAQUENIL [Concomitant]
  4. NEXIUM [Concomitant]
  5. VITAMINS (VITAMINS) (NULL) [Concomitant]

REACTIONS (1)
  - FATIGUE [None]
